FAERS Safety Report 14013539 (Version 1)
Quarter: 2017Q3

REPORT INFORMATION
  Report Type: Spontaneous
  Country: FR (occurrence: FR)
  Receive Date: 20170926
  Receipt Date: 20170926
  Transmission Date: 20171128
  Serious: Yes (Death)
  Sender: FDA-Public Use
  Company Number: FR-PFIZER INC-2352253

PATIENT
  Age: 72 Year
  Sex: Male
  Weight: 70 kg

DRUGS (5)
  1. ROPIVACAINE HYDROCHLORIDE. [Suspect]
     Active Substance: ROPIVACAINE HYDROCHLORIDE
     Dosage: 140 ML (280MG- 4MG/KG)
     Route: 041
  2. ROPIVACAINE HYDROCHLORIDE. [Suspect]
     Active Substance: ROPIVACAINE HYDROCHLORIDE
     Indication: NERVE BLOCK
     Dosage: 60 MG (A BOLUS OF 30 ML OF ROPIVACAINE)
     Route: 040
  3. ROPIVACAINE HYDROCHLORIDE. [Suspect]
     Active Substance: ROPIVACAINE HYDROCHLORIDE
     Dosage: FLOW OF 10 ML PER HOUR
     Route: 041
  4. AMIODARONE [Concomitant]
     Active Substance: AMIODARONE
     Dosage: 150 MG, UNK
  5. ROPIVACAINE HYDROCHLORIDE. [Suspect]
     Active Substance: ROPIVACAINE HYDROCHLORIDE
     Dosage: 30ML OF ROPIVACAINE 2MG/ML - 60MG-0.85 MG/KG
     Route: 040

REACTIONS (5)
  - Loss of consciousness [Fatal]
  - Ventricular tachycardia [Fatal]
  - Blood pressure decreased [Fatal]
  - Toxicity to various agents [Fatal]
  - Ventricular fibrillation [Fatal]
